FAERS Safety Report 4714007-8 (Version None)
Quarter: 2005Q3

REPORT INFORMATION
  Report Type: 
  Country: None (occurrence: None)
  Receive Date: 20050712
  Receipt Date: 20050623
  Transmission Date: 20060218
  Serious: Yes (Death)
  Sender: FDA-Public Use
  Company Number: BRO-008668

PATIENT
  Age: 62 Year
  Sex: Male

DRUGS (2)
  1. PROHANCE [Suspect]
     Indication: ANGIOGRAM
     Dosage: 10 ML, IV
     Route: 042
     Dates: start: 20050427, end: 20050427
  2. SEDATIVES [Concomitant]

REACTIONS (6)
  - ANXIETY [None]
  - CIRCULATORY COLLAPSE [None]
  - COUGH [None]
  - DYSPNOEA [None]
  - LOSS OF CONSCIOUSNESS [None]
  - RESUSCITATION [None]
